FAERS Safety Report 15095941 (Version 3)
Quarter: 2022Q4

REPORT INFORMATION
  Report Type: Spontaneous
  Country: US (occurrence: None)
  Receive Date: 20180702
  Receipt Date: 20221220
  Transmission Date: 20230112
  Serious: Yes (Other)
  Sender: FDA-Public Use
  Company Number: 2018SE84776

PATIENT
  Age: 21646 Day
  Sex: Female
  Weight: 104.8 kg

DRUGS (59)
  1. NEXIUM [Suspect]
     Active Substance: ESOMEPRAZOLE MAGNESIUM
     Indication: Gastrooesophageal reflux disease
     Dosage: DAILY
     Route: 048
     Dates: start: 1998, end: 2015
  2. NEXIUM [Suspect]
     Active Substance: ESOMEPRAZOLE MAGNESIUM
     Indication: Gastric pH decreased
     Dosage: DAILY
     Route: 048
     Dates: start: 1998, end: 2015
  3. NEXIUM [Suspect]
     Active Substance: ESOMEPRAZOLE MAGNESIUM
     Indication: Gastrooesophageal reflux disease
     Dosage: 1 DAILY
     Route: 048
     Dates: start: 2014
  4. NEXIUM [Suspect]
     Active Substance: ESOMEPRAZOLE MAGNESIUM
     Indication: Gastric pH decreased
     Dosage: 1 DAILY
     Route: 048
     Dates: start: 2014
  5. NEXIUM [Suspect]
     Active Substance: ESOMEPRAZOLE MAGNESIUM
     Indication: Gastrooesophageal reflux disease
     Dosage: DAILY
     Route: 048
     Dates: start: 1998, end: 2014
  6. NEXIUM [Suspect]
     Active Substance: ESOMEPRAZOLE MAGNESIUM
     Indication: Gastric pH decreased
     Dosage: DAILY
     Route: 048
     Dates: start: 1998, end: 2014
  7. PRILOSEC [Suspect]
     Active Substance: OMEPRAZOLE MAGNESIUM
     Indication: Gastrooesophageal reflux disease
     Dosage: DAILY
     Route: 048
     Dates: start: 1998, end: 2015
  8. PRILOSEC [Suspect]
     Active Substance: OMEPRAZOLE MAGNESIUM
     Indication: Gastric pH decreased
     Dosage: DAILY
     Route: 048
     Dates: start: 1998, end: 2015
  9. PRILOSEC [Suspect]
     Active Substance: OMEPRAZOLE MAGNESIUM
     Indication: Gastrooesophageal reflux disease
     Dosage: GENERIC-1 DAILY
     Route: 065
  10. PRILOSEC [Suspect]
     Active Substance: OMEPRAZOLE MAGNESIUM
     Indication: Gastric pH decreased
     Dosage: GENERIC-1 DAILY
     Route: 065
  11. PRILOSEC [Suspect]
     Active Substance: OMEPRAZOLE MAGNESIUM
     Indication: Gastrooesophageal reflux disease
     Dosage: DAILY
     Route: 048
     Dates: start: 1998, end: 2002
  12. PRILOSEC [Suspect]
     Active Substance: OMEPRAZOLE MAGNESIUM
     Indication: Gastric pH decreased
     Dosage: DAILY
     Route: 048
     Dates: start: 1998, end: 2002
  13. PRILOSEC [Suspect]
     Active Substance: OMEPRAZOLE MAGNESIUM
     Indication: Gastrooesophageal reflux disease
     Dosage: GENERIC-1 DAILY
     Route: 065
     Dates: start: 2015, end: 2017
  14. PRILOSEC [Suspect]
     Active Substance: OMEPRAZOLE MAGNESIUM
     Indication: Gastric pH decreased
     Dosage: GENERIC-1 DAILY
     Route: 065
     Dates: start: 2015, end: 2017
  15. PRILOSEC [Suspect]
     Active Substance: OMEPRAZOLE MAGNESIUM
     Indication: Gastrooesophageal reflux disease
     Dosage: DAILY
     Route: 048
     Dates: start: 1998, end: 2014
  16. PRILOSEC [Suspect]
     Active Substance: OMEPRAZOLE MAGNESIUM
     Indication: Gastric pH decreased
     Dosage: DAILY
     Route: 048
     Dates: start: 1998, end: 2014
  17. PREVACID [Suspect]
     Active Substance: LANSOPRAZOLE
     Indication: Gastrooesophageal reflux disease
     Dosage: DAILY
     Route: 065
  18. PREVACID [Suspect]
     Active Substance: LANSOPRAZOLE
     Indication: Gastrooesophageal reflux disease
     Dosage: 1 DAILY
     Route: 065
  19. PROTONIX [Suspect]
     Active Substance: PANTOPRAZOLE SODIUM
     Indication: Gastric pH decreased
     Dosage: DAILY
     Route: 065
     Dates: start: 1998, end: 2015
  20. PROTONIX [Suspect]
     Active Substance: PANTOPRAZOLE SODIUM
     Indication: Gastric pH decreased
     Route: 065
     Dates: start: 2006
  21. PROTONIX [Suspect]
     Active Substance: PANTOPRAZOLE SODIUM
     Indication: Gastric pH decreased
     Dosage: DAILY
     Route: 065
     Dates: start: 1998, end: 2014
  22. GABAPENTIN [Concomitant]
     Active Substance: GABAPENTIN
     Indication: Arthritis
  23. PLAVIX [Concomitant]
     Active Substance: CLOPIDOGREL BISULFATE
     Indication: Anticoagulant therapy
  24. FLUOXETINE [Concomitant]
     Active Substance: FLUOXETINE HYDROCHLORIDE
     Indication: Depression
  25. CIMETIDINE [Concomitant]
     Active Substance: CIMETIDINE
  26. TUMS [Concomitant]
     Active Substance: CALCIUM CARBONATE
  27. GUAIFENESIN\PSEUDOEPHEDRINE HYDROCHLORIDE [Concomitant]
     Active Substance: GUAIFENESIN\PSEUDOEPHEDRINE HYDROCHLORIDE
  28. METOPROLOL [Concomitant]
     Active Substance: METOPROLOL
  29. FAMOTIDINE [Concomitant]
     Active Substance: FAMOTIDINE
  30. CLONAZEPAM [Concomitant]
     Active Substance: CLONAZEPAM
  31. FLEXERIL [Concomitant]
     Active Substance: CYCLOBENZAPRINE HYDROCHLORIDE
     Indication: Muscle relaxant therapy
  32. COPRALATE [Concomitant]
     Indication: Headache
  33. PERCOCET [Concomitant]
     Active Substance: ACETAMINOPHEN\OXYCODONE HYDROCHLORIDE
     Indication: Pain
  34. HYDROXYLINE [Concomitant]
     Indication: Pruritus
  35. BITALOPRAM [Concomitant]
     Indication: Anxiety
  36. PROMETHAZINE [Concomitant]
     Active Substance: PROMETHAZINE HYDROCHLORIDE
     Indication: Nausea
  37. TYLENOL [Concomitant]
     Active Substance: ACETAMINOPHEN
     Indication: Headache
  38. ASPIRIN [Concomitant]
     Active Substance: ASPIRIN
     Indication: Anticoagulant therapy
  39. AXID [Concomitant]
     Active Substance: NIZATIDINE
  40. SAVELLA [Concomitant]
     Active Substance: MILNACIPRAN HYDROCHLORIDE
  41. ULTRAM [Concomitant]
     Active Substance: TRAMADOL HYDROCHLORIDE
  42. JANUVIA [Concomitant]
     Active Substance: SITAGLIPTIN PHOSPHATE
  43. METOLAZONE [Concomitant]
     Active Substance: METOLAZONE
  44. PROZAC [Concomitant]
     Active Substance: FLUOXETINE HYDROCHLORIDE
  45. COREG [Concomitant]
     Active Substance: CARVEDILOL
  46. LEXAPRO [Concomitant]
     Active Substance: ESCITALOPRAM OXALATE
  47. LEVEMIR [Concomitant]
     Active Substance: INSULIN DETEMIR
  48. REGLAN [Concomitant]
     Active Substance: METOCLOPRAMIDE HYDROCHLORIDE
  49. ROBAXIN [Concomitant]
     Active Substance: METHOCARBAMOL
  50. VITAMINS [Concomitant]
     Active Substance: VITAMINS
  51. TOPAMAX [Concomitant]
     Active Substance: TOPIRAMATE
  52. KLONOPIN [Concomitant]
     Active Substance: CLONAZEPAM
  53. ERGOCALCIFEROL [Concomitant]
     Active Substance: ERGOCALCIFEROL
  54. SIMVASTATIN [Concomitant]
     Active Substance: SIMVASTATIN
  55. HUMALOG [Concomitant]
     Active Substance: INSULIN LISPRO
  56. MOBIC [Concomitant]
     Active Substance: MELOXICAM
  57. CALCIUM [Concomitant]
     Active Substance: CALCIUM
  58. ZANTAC [Concomitant]
     Active Substance: RANITIDINE HYDROCHLORIDE
  59. IPRATROPIUM [Concomitant]
     Active Substance: IPRATROPIUM

REACTIONS (3)
  - Chronic kidney disease [Unknown]
  - Renal failure [Not Recovered/Not Resolved]
  - End stage renal disease [Unknown]

NARRATIVE: CASE EVENT DATE: 20130110
